FAERS Safety Report 17130775 (Version 7)
Quarter: 2020Q1

REPORT INFORMATION
  Report Type: Report from Study
  Country: TW (occurrence: TW)
  Receive Date: 20191209
  Receipt Date: 20200106
  Transmission Date: 20200409
  Serious: Yes (Hospitalization)
  Sender: FDA-Public Use
  Company Number: TW-EISAI MEDICAL RESEARCH-EC-2019-066684

PATIENT
  Age: 68 Year
  Sex: Female
  Weight: 70.6 kg

DRUGS (16)
  1. PLACEBO [Suspect]
     Active Substance: UNSPECIFIED INGREDIENT
     Indication: HEPATOCELLULAR CARCINOMA
     Route: 041
     Dates: start: 20190614, end: 20191106
  2. PLACEBO [Suspect]
     Active Substance: UNSPECIFIED INGREDIENT
     Route: 041
     Dates: start: 20191127, end: 20191127
  3. PLENDIL [Concomitant]
     Active Substance: FELODIPINE
     Dates: start: 20191106, end: 20191220
  4. URETROPIC [Concomitant]
     Active Substance: FUROSEMIDE
     Dates: start: 20191127, end: 20191217
  5. MORCASIN TABLETS [Concomitant]
     Dates: start: 20191127, end: 20191213
  6. PLACEBO [Suspect]
     Active Substance: UNSPECIFIED INGREDIENT
     Route: 041
     Dates: start: 20191218
  7. SILYMA [Concomitant]
     Dates: start: 20081202
  8. SILENCE [Concomitant]
     Dates: start: 20190502, end: 20191222
  9. EURODIN [Concomitant]
     Dates: start: 20191016
  10. LENVATINIB [Suspect]
     Active Substance: LENVATINIB
     Route: 048
     Dates: start: 20191127, end: 20191203
  11. AMLODIPINE [Concomitant]
     Active Substance: AMLODIPINE BESYLATE
     Dates: start: 201302
  12. THYROID S [Concomitant]
     Dates: start: 20190902, end: 20191217
  13. COZAAR [Concomitant]
     Active Substance: LOSARTAN POTASSIUM
     Dates: start: 20190828
  14. LENVATINIB [Suspect]
     Active Substance: LENVATINIB
     Indication: HEPATOCELLULAR CARCINOMA
     Dosage: STARTING DOSE: 12 MG,FLUCTUATED DOSAGE
     Route: 048
     Dates: start: 20190614, end: 20191126
  15. LENVATINIB [Suspect]
     Active Substance: LENVATINIB
     Route: 048
     Dates: start: 20191206
  16. FAMO [Concomitant]
     Dates: start: 20190715

REACTIONS (1)
  - Ileus [Recovered/Resolved]

NARRATIVE: CASE EVENT DATE: 20191202
